FAERS Safety Report 21909571 (Version 6)
Quarter: 2023Q1

REPORT INFORMATION
  Report Type: Spontaneous
  Country: US (occurrence: US)
  Receive Date: 20230125
  Receipt Date: 20230301
  Transmission Date: 20230418
  Serious: No
  Sender: FDA-Public Use
  Company Number: US-PFIZER INC-PV202300011525

PATIENT
  Age: 14 Year
  Sex: Female
  Weight: 38.56 kg

DRUGS (2)
  1. GENOTROPIN [Suspect]
     Active Substance: SOMATROPIN
     Indication: Turner^s syndrome
     Dosage: 1.6 MG, DAILY (EVERY NIGHT)
  2. ESTROGENS [Concomitant]
     Active Substance: ESTROGENS
     Indication: Growth disorder
     Dosage: 0.125 MG, WEEKLY (ESTROGEN PATCH: STARTED ABOUT 6 MONTHS AGO)
     Dates: start: 202207

REACTIONS (3)
  - Drug dose omission by device [Unknown]
  - Expired device used [Unknown]
  - Device issue [Unknown]
